FAERS Safety Report 9169569 (Version 1)
Quarter: 2013Q1

REPORT INFORMATION
  Report Type: Spontaneous
  Country: US (occurrence: US)
  Receive Date: 20130318
  Receipt Date: 20130318
  Transmission Date: 20140127
  Serious: No
  Sender: FDA-Public Use
  Company Number: US-TEVA-392616USA

PATIENT
  Age: 21 Year
  Sex: Female
  Weight: 53.12 kg

DRUGS (1)
  1. PLAN B ONE-STEP [Suspect]
     Indication: POST COITAL CONTRACEPTION
     Dosage: 1.5 MILLIGRAM DAILY;
     Route: 048
     Dates: start: 20130309, end: 20130309

REACTIONS (8)
  - Feeling abnormal [Unknown]
  - Irritability [Unknown]
  - Premenstrual syndrome [Unknown]
  - Back pain [Not Recovered/Not Resolved]
  - Arthralgia [Not Recovered/Not Resolved]
  - Fatigue [Unknown]
  - Pelvic pain [Not Recovered/Not Resolved]
  - Metrorrhagia [Not Recovered/Not Resolved]
